FAERS Safety Report 6074908-8 (Version None)
Quarter: 2009Q1

REPORT INFORMATION
  Report Type: 
  Country: None (occurrence: None)
  Receive Date: 20090212
  Receipt Date: 20090202
  Transmission Date: 20090719
  Serious: No
  Sender: FDA-Public Use
  Company Number: US-ASTRAZENECA-2009UW02939

PATIENT
  Age: 59 Year
  Sex: Female

DRUGS (4)
  1. RHINOCORT [Suspect]
     Indication: MULTIPLE ALLERGIES
     Dosage: ONE SPRAY EACH NOSTRIL DAILY
     Route: 045
     Dates: start: 20081001, end: 20090131
  2. ZETIA [Concomitant]
     Route: 048
  3. BONIVA [Concomitant]
     Route: 048
  4. SYNTHROID [Concomitant]
     Route: 048

REACTIONS (1)
  - DIZZINESS [None]
